FAERS Safety Report 4590263-4 (Version None)
Quarter: 2005Q1

REPORT INFORMATION
  Report Type: 
  Country: None (occurrence: None)
  Receive Date: 20050224
  Receipt Date: 20050214
  Transmission Date: 20050727
  Serious: Yes (Other)
  Sender: FDA-Public Use
  Company Number: US-AMGEN-US113804

PATIENT
  Sex: Male
  Weight: 69 kg

DRUGS (5)
  1. ARANESP [Suspect]
     Indication: ANAEMIA OF MALIGNANT DISEASE
     Route: 058
     Dates: start: 20040929
  2. FLUDARABINE PHOSPHATE [Concomitant]
     Dates: start: 20040930, end: 20050106
  3. CYTOXAN [Concomitant]
     Dates: start: 20040930, end: 20050106
  4. RITUXAN [Concomitant]
     Dates: start: 20040930, end: 20050106
  5. BLOOD CELLS, PACKED HUMAN [Concomitant]
     Dates: start: 20040801, end: 20050201

REACTIONS (3)
  - APLASIA PURE RED CELL [None]
  - DRUG INEFFECTIVE [None]
  - SINUSITIS [None]
